FAERS Safety Report 17062227 (Version 1)
Quarter: 2019Q4

REPORT INFORMATION
  Report Type: Spontaneous
  Country: JP (occurrence: JP)
  Receive Date: 20191122
  Receipt Date: 20191122
  Transmission Date: 20200122
  Serious: Yes (Hospitalization)
  Sender: FDA-Public Use
  Company Number: JP-ROCHE-2460222

PATIENT
  Age: 58 Year
  Sex: Male
  Weight: 83 kg

DRUGS (7)
  1. TECENTRIQ [Suspect]
     Active Substance: ATEZOLIZUMAB
     Indication: NON-SMALL CELL LUNG CANCER
     Dosage: DOSAGE IS UNCERTAIN.
     Route: 041
     Dates: start: 20190308, end: 20190909
  2. AVASTIN [Suspect]
     Active Substance: BEVACIZUMAB
     Indication: NON-SMALL CELL LUNG CANCER
     Dosage: DOSAGE IS UNCERTAIN.
     Route: 041
     Dates: start: 20190308, end: 20190909
  3. DEXART [Concomitant]
     Active Substance: DEXAMETHASONE SODIUM PHOSPHATE
     Indication: NON-SMALL CELL LUNG CANCER
     Dosage: ONLY CHEMOTHERAPY DAY1 IS ADMINISTERED.
     Route: 041
     Dates: start: 20190308, end: 20190625
  4. RANITIDINE. [Concomitant]
     Active Substance: RANITIDINE
     Indication: NON-SMALL CELL LUNG CANCER
     Dosage: ONLY CHEMOTHERAPY DAY1 IS ADMINISTERED.
     Route: 041
     Dates: start: 20190308, end: 20190625
  5. PACLITAXEL. [Concomitant]
     Active Substance: PACLITAXEL
     Indication: NON-SMALL CELL LUNG CANCER
     Dosage: DOSAGE IS UNCERTAIN.
     Route: 041
     Dates: start: 20190308, end: 20190625
  6. CARBOPLATIN. [Concomitant]
     Active Substance: CARBOPLATIN
     Indication: NON-SMALL CELL LUNG CANCER
     Dosage: DOSAGE IS UNCERTAIN.
     Route: 041
     Dates: start: 20190308, end: 20190625
  7. GRANISETRON [Concomitant]
     Active Substance: GRANISETRON
     Indication: NON-SMALL CELL LUNG CANCER
     Dosage: ONLY CHEMOTHERAPY DAY1 IS ADMINISTERED.
     Route: 041
     Dates: start: 20190308, end: 20190625

REACTIONS (1)
  - Interstitial lung disease [Not Recovered/Not Resolved]

NARRATIVE: CASE EVENT DATE: 20190925
